FAERS Safety Report 9779697 (Version 2)
Quarter: 2013Q4

REPORT INFORMATION
  Report Type: Spontaneous
  Country: US (occurrence: US)
  Receive Date: 20131223
  Receipt Date: 20131223
  Transmission Date: 20140711
  Serious: Yes (Other)
  Sender: FDA-Public Use
  Company Number: US-BANPHARM-20131970

PATIENT
  Age: 54 Year
  Sex: Female
  Weight: 117.93 kg

DRUGS (2)
  1. ALEVE LIQUID GELS 220 MG [Suspect]
     Route: 048
  2. LUNESTA [Concomitant]

REACTIONS (4)
  - Blood urine present [Recovered/Resolved]
  - Chromaturia [Recovered/Resolved]
  - Blood urine present [Recovered/Resolved]
  - Abdominal pain [Recovered/Resolved]
